FAERS Safety Report 19563618 (Version 3)
Quarter: 2021Q4

REPORT INFORMATION
  Report Type: Report from Study
  Country: None (occurrence: CA)
  Receive Date: 20210716
  Receipt Date: 20211006
  Transmission Date: 20220303
  Serious: Yes (Death, Hospitalization, Other)
  Sender: FDA-Public Use
  Company Number: CA-ABBVIE-21K-028-3992492-00

PATIENT
  Sex: Female

DRUGS (1)
  1. SKYRIZI [Suspect]
     Active Substance: RISANKIZUMAB-RZAA
     Indication: Psoriasis
     Route: 058
     Dates: start: 20200127, end: 20210419

REACTIONS (8)
  - Death [Fatal]
  - Incontinence [Not Recovered/Not Resolved]
  - Breast cancer female [Not Recovered/Not Resolved]
  - General physical health deterioration [Unknown]
  - Fall [Unknown]
  - Neoplasm [Unknown]
  - Pneumonia [Not Recovered/Not Resolved]
  - Lymphadenopathy [Unknown]

NARRATIVE: CASE EVENT DATE: 20210101
